FAERS Safety Report 4896099-9 (Version None)
Quarter: 2005Q4

REPORT INFORMATION
  Report Type: 
  Country: None (occurrence: None)
  Receive Date: 20051220
  Receipt Date: 20050721
  Transmission Date: 20060501
  Serious: Yes (Other)
  Sender: FDA-Public Use
  Company Number: US143521

PATIENT
  Age: 43 Year
  Sex: Male

DRUGS (2)
  1. ENBREL [Suspect]
     Indication: PSORIASIS
     Dosage: 25 MG, 2 IN 1 WEEKS
     Dates: start: 20031126, end: 20050101
  2. ATORVASTATIN CALCIUM [Concomitant]

REACTIONS (3)
  - INJECTION SITE PAIN [None]
  - MYOCARDIAL ISCHAEMIA [None]
  - SINUSITIS [None]
